FAERS Safety Report 7931538-8 (Version None)
Quarter: 2011Q4

REPORT INFORMATION
  Report Type: 
  Country: None (occurrence: None)
  Receive Date: 20111121
  Receipt Date: 20111121
  Transmission Date: 20120403
  Serious: Yes (Other)
  Sender: FDA-Public Use
  Company Number: None

PATIENT
  Age: 83 Year
  Sex: Male
  Weight: 58.967 kg

DRUGS (2)
  1. CT CONTRAST DYE [Suspect]
  2. CT IODIN CONTRAST DYE [Concomitant]

REACTIONS (9)
  - GENERAL PHYSICAL HEALTH DETERIORATION [None]
  - FATIGUE [None]
  - APHONIA [None]
  - OFF LABEL USE [None]
  - RENAL FAILURE [None]
  - PNEUMONIA [None]
  - CONTRAST MEDIA REACTION [None]
  - RESPIRATORY DISTRESS [None]
  - DIALYSIS [None]
